FAERS Safety Report 5782634-5 (Version None)
Quarter: 2008Q2

REPORT INFORMATION
  Report Type: 
  Country: None (occurrence: None)
  Receive Date: 20080619
  Receipt Date: 20080619
  Transmission Date: 20081010
  Serious: Yes (Life-Threatening)
  Sender: FDA-Public Use
  Company Number: None

PATIENT
  Age: 57 Year
  Sex: Female
  Weight: 102.9665 kg

DRUGS (1)
  1. DIOVAN HCT [Suspect]
     Indication: HYPERTENSION
     Dosage: 1 A DAY PO
     Route: 048
     Dates: start: 20080501, end: 20080613

REACTIONS (4)
  - DRUG PRESCRIBING ERROR [None]
  - JOINT SWELLING [None]
  - MEDICATION ERROR [None]
  - OEDEMA PERIPHERAL [None]
